FAERS Safety Report 25524969 (Version 1)
Quarter: 2025Q3

REPORT INFORMATION
  Report Type: Spontaneous
  Country: EU (occurrence: EU)
  Receive Date: 20250707
  Receipt Date: 20250707
  Transmission Date: 20251020
  Serious: Yes (Hospitalization, Other)
  Sender: CHEPLAPHARM
  Company Number: EU-CHEPLA-2025008134

PATIENT
  Sex: Female
  Weight: 2.15 kg

DRUGS (4)
  1. GANCICLOVIR [Suspect]
     Active Substance: GANCICLOVIR
     Indication: Congenital cytomegalovirus infection
     Route: 042
  2. VALGANCICLOVIR [Suspect]
     Active Substance: VALGANCICLOVIR
     Indication: Congenital cytomegalovirus infection
     Route: 048
  3. AMPICILLIN [Concomitant]
     Active Substance: AMPICILLIN
     Indication: Antibiotic therapy
  4. GENTAMICIN [Concomitant]
     Active Substance: GENTAMICIN
     Indication: Antibiotic therapy

REACTIONS (6)
  - Cytomegalovirus chorioretinitis [Recovered/Resolved]
  - Petechiae [Unknown]
  - Retinal haemorrhage [Unknown]
  - Retinal pigmentation [Unknown]
  - Visual impairment [Unknown]
  - Off label use [Recovered/Resolved]
